FAERS Safety Report 21339944 (Version 16)
Quarter: 2024Q2

REPORT INFORMATION
  Report Type: Spontaneous
  Country: CA (occurrence: CA)
  Receive Date: 20220915
  Receipt Date: 20240403
  Transmission Date: 20240715
  Serious: Yes (Other)
  Sender: FDA-Public Use
  Company Number: CA-CELLTRION INC.-2022CA014658

PATIENT

DRUGS (12)
  1. INFLECTRA [Suspect]
     Active Substance: INFLIXIMAB-DYYB
     Indication: Crohn^s disease
     Dosage: 500 MG,AT 0, 2, 6 WEEKS, THEN EVERY 8 WEEKS
     Route: 042
     Dates: start: 20220525, end: 20230512
  2. INFLECTRA [Suspect]
     Active Substance: INFLIXIMAB-DYYB
     Dosage: 500 MG,AT 0, 2, 6 WEEKS, THEN EVERY 8 WEEKS
     Route: 042
     Dates: start: 20220707
  3. INFLECTRA [Suspect]
     Active Substance: INFLIXIMAB-DYYB
     Dosage: UNK
     Route: 042
     Dates: start: 20230228
  4. INFLECTRA [Suspect]
     Active Substance: INFLIXIMAB-DYYB
     Dosage: 500 MG,EVERY 4 WEEKS
     Route: 042
     Dates: start: 20230609
  5. INFLECTRA [Suspect]
     Active Substance: INFLIXIMAB-DYYB
     Dosage: 500 MG,EVERY 4 WEEKS
     Route: 042
     Dates: start: 20230707
  6. INFLECTRA [Suspect]
     Active Substance: INFLIXIMAB-DYYB
     Dosage: 500 MG,EVERY 4 WEEKS
     Route: 042
     Dates: start: 20231027
  7. INFLECTRA [Suspect]
     Active Substance: INFLIXIMAB-DYYB
     Dosage: 500 MG,EVERY 4 WEEKS
     Route: 042
     Dates: start: 20231201
  8. INFLECTRA [Suspect]
     Active Substance: INFLIXIMAB-DYYB
     Dosage: 500 MG,EVERY 4 WEEKS
     Route: 042
     Dates: start: 20240126
  9. INFLECTRA [Suspect]
     Active Substance: INFLIXIMAB-DYYB
     Dosage: 500 MG, AFTER 3 WEEKS AND 6 DAYS (PRESCRIBED EVERY 4 WEEKS)
     Route: 042
     Dates: start: 20240222
  10. INFLECTRA [Suspect]
     Active Substance: INFLIXIMAB-DYYB
     Dosage: 500 MG, AFTER 4 WEEKS AND 1 DAY (SUPPOSED TO RECEIVE 1000 MG)
     Route: 042
     Dates: start: 20240322
  11. AMOXICILLIN [Concomitant]
     Active Substance: AMOXICILLIN
     Dosage: 500 MG, 3X/DAY
     Route: 048
     Dates: start: 20230425
  12. PREDNISONE [Concomitant]
     Active Substance: PREDNISONE
     Dosage: 30 MG, FREQUENCY: UNKNOWN
     Route: 065
     Dates: start: 20220525

REACTIONS (19)
  - Crohn^s disease [Recovering/Resolving]
  - Strangulated hernia [Recovered/Resolved]
  - Inguinal hernia [Recovered/Resolved]
  - Groin pain [Recovering/Resolving]
  - Tooth abscess [Recovering/Resolving]
  - Lower respiratory tract infection viral [Recovered/Resolved]
  - Vomiting [Recovering/Resolving]
  - Oral infection [Unknown]
  - Tooth restoration [Unknown]
  - Swelling face [Unknown]
  - Facial pain [Unknown]
  - Erythema [Unknown]
  - Faecal calprotectin increased [Not Recovered/Not Resolved]
  - Gastrointestinal wall thickening [Unknown]
  - Scrotal inflammation [Unknown]
  - Abdominal pain lower [Not Recovered/Not Resolved]
  - Off label use [Unknown]
  - Incorrect dose administered [Unknown]
  - Inappropriate schedule of product administration [Unknown]

NARRATIVE: CASE EVENT DATE: 20220801
